FAERS Safety Report 14591020 (Version 2)
Quarter: 2018Q1

REPORT INFORMATION
  Report Type: Spontaneous
  Country: JP (occurrence: JP)
  Receive Date: 20180302
  Receipt Date: 20180307
  Transmission Date: 20180509
  Serious: Yes (Other)
  Sender: FDA-Public Use
  Company Number: JP-PFIZER INC-2016056881

PATIENT
  Age: 4 Decade
  Sex: Male

DRUGS (6)
  1. LEXOTAN [Concomitant]
     Active Substance: BROMAZEPAM
     Dosage: 1 MG, 2X/DAY (IN THE MORNING AND AT BEDTIME)
     Route: 048
  2. LEXOTAN [Concomitant]
     Active Substance: BROMAZEPAM
     Indication: PANIC DISORDER
     Dosage: 1 MG, DAILY (IN DAYTIME)
     Route: 048
  3. SOLANAX [Concomitant]
     Active Substance: ALPRAZOLAM
     Indication: ANXIETY
     Dosage: 0.4 MG, AS NEEDED (0.5 TABLETS WHEN THE PATIENT FELT WELL)
     Route: 048
  4. HANGEKOBOKUTO [Concomitant]
     Active Substance: HERBALS
     Indication: PANIC DISORDER
     Dosage: UNK
  5. JZOLOFT 25MG [Suspect]
     Active Substance: SERTRALINE HYDROCHLORIDE
     Indication: DEPRESSION
     Dosage: 25 MG, 1X/DAY (AFTER DINNER)
     Route: 048
     Dates: start: 201412
  6. SOLANAX [Concomitant]
     Active Substance: ALPRAZOLAM
     Indication: PANIC DISORDER

REACTIONS (22)
  - Urinary retention [Unknown]
  - Dry mouth [Recovering/Resolving]
  - Intentional product use issue [Unknown]
  - Somnolence [Unknown]
  - Psychiatric symptom [Not Recovered/Not Resolved]
  - Diarrhoea [Unknown]
  - Sexual dysfunction [Unknown]
  - White blood cell count decreased [Unknown]
  - Urinary incontinence [Unknown]
  - Dizziness [Unknown]
  - Nausea [Unknown]
  - Feeling abnormal [Unknown]
  - Memory impairment [Unknown]
  - Mental disorder [Unknown]
  - Anxiety [Not Recovered/Not Resolved]
  - Palpitations [Unknown]
  - Dyspnoea [Unknown]
  - Headache [Unknown]
  - Fatigue [Unknown]
  - Paraesthesia [Unknown]
  - Feeling of despair [Not Recovered/Not Resolved]
  - Dysuria [Unknown]

NARRATIVE: CASE EVENT DATE: 2014
